FAERS Safety Report 23310242 (Version 1)
Quarter: 2023Q4

REPORT INFORMATION
  Report Type: Spontaneous
  Country: US (occurrence: None)
  Receive Date: 20231218
  Receipt Date: 20231218
  Transmission Date: 20240109
  Serious: No
  Sender: FDA-Public Use
  Company Number: None

PATIENT
  Age: 31 Year
  Sex: Male

DRUGS (2)
  1. EMTRICITABINE\TENOFOVIR [Suspect]
     Active Substance: EMTRICITABINE\TENOFOVIR
     Indication: Prophylaxis
     Dosage: OTHER QUANTITY : TAKE 1;?FREQUENCY : DAILY;?OTHER ROUTE : DAILY;?
     Route: 050
     Dates: start: 20231201, end: 20231213
  2. CALCIUM [Concomitant]

REACTIONS (2)
  - Diarrhoea [None]
  - Headache [None]

NARRATIVE: CASE EVENT DATE: 20231215
